FAERS Safety Report 19168806 (Version 3)
Quarter: 2021Q3

REPORT INFORMATION
  Report Type: Spontaneous
  Country: JP (occurrence: JP)
  Receive Date: 20210422
  Receipt Date: 20210727
  Transmission Date: 20211014
  Serious: Yes (Hospitalization, Other)
  Sender: FDA-Public Use
  Company Number: JP-AMGEN-JPNSP2021033303

PATIENT
  Age: 18 Month
  Sex: Female
  Weight: 10.26 kg

DRUGS (19)
  1. BLINCYTO [Suspect]
     Active Substance: BLINATUMOMAB
     Indication: ACUTE LYMPHOCYTIC LEUKAEMIA RECURRENT
     Dosage: 6.9 MICROGRAM, QD
     Route: 041
     Dates: start: 20210224, end: 2021
  2. BLINCYTO [Suspect]
     Active Substance: BLINATUMOMAB
     Dosage: UNK
     Route: 041
     Dates: start: 20210303, end: 20210324
  3. ALLOPURINOL. [Concomitant]
     Active Substance: ALLOPURINOL
     Indication: HYPERURICAEMIA
     Dosage: 50 MILLIGRAM, BID
     Dates: start: 20210113
  4. MIYA?BM [Concomitant]
     Active Substance: CLOSTRIDIUM BUTYRICUM SPORES STRAIN M-55
     Dosage: 0.33 GRAM, TID
     Dates: start: 20200128
  5. SODIUM BICARBONATE. [Concomitant]
     Active Substance: SODIUM BICARBONATE
     Dosage: 0.5 GRAM, TID
     Dates: start: 20200916
  6. PLATELETS [Concomitant]
     Active Substance: HUMAN PLATELET, ALLOGENIC
  7. LIPIDIL [Concomitant]
     Active Substance: FENOFIBRATE
     Indication: HYPERCHOLESTEROLAEMIA
     Dosage: 80 MILLIGRAM, QD
     Dates: start: 20200324
  8. TOCOPHEROL [Concomitant]
     Active Substance: TOCOPHEROL
     Indication: HYPERLIPIDAEMIA
     Dosage: 200 MILLIGRAM, TID
     Dates: start: 20200607
  9. THYRADIN S [Concomitant]
     Active Substance: LEVOTHYROXINE SODIUM
     Indication: HYPOTHYROIDISM
     Dosage: 40 MICROGRAM, QD
     Dates: start: 20200427
  10. BLINCYTO [Suspect]
     Active Substance: BLINATUMOMAB
     Dosage: 7.2 MICROGRAM, QD
     Route: 041
     Dates: start: 20210407, end: 20210505
  11. FLUCONAZOLE. [Concomitant]
     Active Substance: FLUCONAZOLE
     Indication: PROPHYLAXIS
     Dosage: 100 MILLIGRAM, QD
     Dates: start: 20200224
  12. URINORM [BENZBROMARONE] [Concomitant]
     Indication: HYPERURICAEMIA
     Dosage: 12.5 MILLIGRAM, QD
     Dates: start: 20200921
  13. ENALAPRIL MALEATE. [Concomitant]
     Active Substance: ENALAPRIL MALEATE
     Indication: CARDIAC FAILURE CHRONIC
     Dosage: 1.5 MILLIGRAM, QD
     Dates: start: 20200206
  14. TRICLORYL [Concomitant]
     Active Substance: TRICLOFOS SODIUM
     Dosage: 6 MILLILITER, BID
     Dates: start: 20200215
  15. CARVEDILOL. [Concomitant]
     Active Substance: CARVEDILOL
     Indication: CARDIAC FAILURE CHRONIC
     Dosage: 1 MILLIGRAM, QD
     Dates: start: 20200515, end: 20210227
  16. BLINCYTO [Suspect]
     Active Substance: BLINATUMOMAB
     Dosage: UNK
     Route: 041
     Dates: start: 20210521
  17. BAKTAR [Concomitant]
     Active Substance: SULFAMETHOXAZOLE\TRIMETHOPRIM
     Indication: PROPHYLAXIS
     Dosage: 0.25 GRAM, BID
     Dates: start: 20200129
  18. SODIUM CHLORIDE. [Concomitant]
     Active Substance: SODIUM CHLORIDE
     Indication: HYPONATRAEMIA
     Dosage: 0.2 GRAM, BID
     Dates: start: 20200119
  19. FAMOTIDINE. [Concomitant]
     Active Substance: FAMOTIDINE
     Indication: PROPHYLAXIS
     Dosage: 10 MILLIGRAM, QD
     Dates: start: 20200124

REACTIONS (3)
  - Myelosuppression [Recovering/Resolving]
  - Therapeutic product effect incomplete [Not Recovered/Not Resolved]
  - Sinus arrest [Recovered/Resolved]

NARRATIVE: CASE EVENT DATE: 20210224
